FAERS Safety Report 10527067 (Version 2)
Quarter: 2014Q4

REPORT INFORMATION
  Report Type: Spontaneous
  Country: US (occurrence: None)
  Receive Date: 20141016
  Receipt Date: 20141022
  Transmission Date: 20150528
  Serious: Yes (Death, Hospitalization, Disabling)
  Sender: FDA-Public Use
  Company Number: 2014AP005101

PATIENT
  Age: 78 Year
  Sex: Male

DRUGS (17)
  1. FERRIPROX [Suspect]
     Active Substance: DEFERIPRONE
     Indication: MYELODYSPLASTIC SYNDROME
     Route: 048
     Dates: start: 20140805, end: 20140904
  2. LEVOFLOXACIN. [Concomitant]
     Active Substance: LEVOFLOXACIN
  3. ACYCLOVIR. [Concomitant]
     Active Substance: ACYCLOVIR
  4. MIRABEGRON [Concomitant]
     Active Substance: MIRABEGRON
  5. FERRIPROX [Suspect]
     Active Substance: DEFERIPRONE
     Indication: TRANSFUSION
     Route: 048
     Dates: start: 20140805, end: 20140904
  6. ALLOPURINOL. [Concomitant]
     Active Substance: ALLOPURINOL
  7. AMLODIPINE [Concomitant]
     Active Substance: AMLODIPINE BESYLATE
  8. ATORVASTATIN [Concomitant]
     Active Substance: ATORVASTATIN
  9. FERRIPROX [Suspect]
     Active Substance: DEFERIPRONE
     Indication: LYMPHOMA
     Route: 048
     Dates: start: 20140805, end: 20140904
  10. FERRIPROX [Suspect]
     Active Substance: DEFERIPRONE
     Indication: HAEMOCHROMATOSIS
     Route: 048
     Dates: start: 20140805, end: 20140904
  11. METOPROLOL [Concomitant]
     Active Substance: METOPROLOL
  12. MELOXICAM. [Concomitant]
     Active Substance: MELOXICAM
  13. PREDNISONE. [Concomitant]
     Active Substance: PREDNISONE
  14. LOSARTAN (LOSARTAN) [Concomitant]
     Active Substance: LOSARTAN
  15. LORATADINE. [Concomitant]
     Active Substance: LORATADINE
  16. GUAIFENESIN/CODEINE (CODEINE PHOSPHATE, GUAIFENESIN) [Concomitant]
  17. METRONIDAZOLE. [Concomitant]
     Active Substance: METRONIDAZOLE

REACTIONS (3)
  - Abasia [None]
  - Arthralgia [None]
  - Blood disorder [None]

NARRATIVE: CASE EVENT DATE: 201409
